FAERS Safety Report 5463275-6 (Version None)
Quarter: 2007Q3

REPORT INFORMATION
  Report Type: 
  Country: None (occurrence: None)
  Receive Date: 20070920
  Receipt Date: 20070912
  Transmission Date: 20080115
  Serious: Yes (Hospitalization, Other)
  Sender: FDA-Public Use
  Company Number: GB-BRISTOL-MYERS SQUIBB COMPANY-13913165

PATIENT
  Age: 31 Year
  Sex: Male

DRUGS (4)
  1. IFOSFAMIDE [Suspect]
     Indication: NEUROECTODERMAL NEOPLASM
     Dosage: 1 DOSAGE FORM = 24 G/M**2.
     Dates: start: 20040601, end: 20040901
  2. VINCRISTINE [Concomitant]
     Dates: start: 20040901, end: 20040901
  3. DOXORUBICIN HCL [Concomitant]
     Dates: start: 20040901, end: 20040901
  4. ETOPOSIDE [Concomitant]
     Dates: start: 20040901, end: 20040901

REACTIONS (6)
  - FANCONI SYNDROME [None]
  - FEBRILE NEUTROPENIA [None]
  - KIDNEY FIBROSIS [None]
  - NAUSEA [None]
  - OSTEOMALACIA [None]
  - VOMITING [None]
